FAERS Safety Report 16336544 (Version 1)
Quarter: 2019Q2

REPORT INFORMATION
  Report Type: Spontaneous
  Country: RU (occurrence: RU)
  Receive Date: 20190521
  Receipt Date: 20190521
  Transmission Date: 20190711
  Serious: Yes (Other)
  Sender: FDA-Public Use
  Company Number: RU-SA-2019SA134705

PATIENT
  Age: 60 Year
  Sex: Male

DRUGS (12)
  1. GANCICLOVIR. [Concomitant]
     Active Substance: GANCICLOVIR
     Indication: CHEMOTHERAPY
  2. CYCLOPHOSPHAMIDE. [Concomitant]
     Active Substance: CYCLOPHOSPHAMIDE
     Indication: CHEMOTHERAPY
     Dosage: 60 MG/KG, UNK
  3. RITUXIMAB. [Concomitant]
     Active Substance: RITUXIMAB
     Indication: CHEMOTHERAPY
  4. MYLERAN [Suspect]
     Active Substance: BUSULFAN
     Indication: CHEMOTHERAPY
     Dosage: 30 MG / 400 MG; 100 MG EVERY DAY MG / 3.2 MG/KG
  5. PREDNISONE. [Concomitant]
     Active Substance: PREDNISONE
     Indication: NEPHROPATHY
     Dosage: UNK, UNK
  6. LEFLUNOMIDE. [Suspect]
     Active Substance: LEFLUNOMIDE
     Indication: CHEMOTHERAPY
     Dosage: 30 MG / 400 MG; 100 MG EVERY DAY MG / 3.2 MG/KG
     Route: 048
  7. CYCLOSPORIN [Concomitant]
     Active Substance: CYCLOSPORINE
     Indication: NEPHROPATHY
     Dosage: 2.5 MG/KG, BID
  8. RIBOMUSTIN [Concomitant]
     Active Substance: BENDAMUSTINE HYDROCHLORIDE
     Indication: CHEMOTHERAPY
     Dosage: UNK, UNK
     Route: 042
  9. DOXORUBICIN HYDROCHLORIDE. [Concomitant]
     Active Substance: DOXORUBICIN HYDROCHLORIDE
     Indication: CHEMOTHERAPY
     Route: 042
  10. VINCRISTINE SULFATE. [Concomitant]
     Active Substance: VINCRISTINE SULFATE
     Indication: CHEMOTHERAPY
  11. LEMTRADA [Suspect]
     Active Substance: ALEMTUZUMAB
     Indication: CHEMOTHERAPY
     Dosage: 30 MG / 400 MG; 100 MG EVERY DAY MG / 3.2 MG/KG
     Route: 041
  12. GAZYVA [Concomitant]
     Active Substance: OBINUTUZUMAB
     Indication: CHEMOTHERAPY

REACTIONS (3)
  - Renal failure [Unknown]
  - Drug ineffective [Unknown]
  - Off label use [Unknown]
